FAERS Safety Report 5376107-1 (Version None)
Quarter: 2007Q3

REPORT INFORMATION
  Report Type: 
  Country: None (occurrence: None)
  Receive Date: 20070702
  Receipt Date: 20070621
  Transmission Date: 20080115
  Serious: Yes (Other)
  Sender: FDA-Public Use
  Company Number: B0456818A

PATIENT
  Sex: Male

DRUGS (16)
  1. PAROXETINE HCL [Suspect]
     Dosage: 30MG PER DAY
     Route: 048
     Dates: start: 20050101, end: 20070101
  2. MILLEPERTUIS [Suspect]
     Route: 065
     Dates: start: 20061001, end: 20061101
  3. NEBILOX [Concomitant]
     Dosage: 2.5MG PER DAY
     Route: 065
  4. HYPERIUM [Concomitant]
     Route: 065
     Dates: end: 20060101
  5. OLMESARTAN MEDOXOMIL [Concomitant]
     Dosage: 20MG PER DAY
     Route: 065
     Dates: start: 20060101
  6. HYDROCHLOROTHIAZIDE [Concomitant]
     Dosage: 12.5MG PER DAY
     Route: 065
     Dates: start: 20060101
  7. AMLODIPINE [Concomitant]
     Dosage: 10MG PER DAY
     Route: 065
     Dates: start: 20060101
  8. DOGMATIL [Concomitant]
     Dosage: 50MG TWICE PER DAY
     Route: 065
  9. LYSANXIA 10 [Concomitant]
     Dosage: 10MG THREE TIMES PER DAY
     Route: 065
  10. VASTAREL [Concomitant]
     Dosage: 70MG PER DAY
     Route: 065
  11. KARDEGIC 160 [Concomitant]
     Dosage: 160MG PER DAY
     Route: 065
  12. PIASCLEDINE 300 [Concomitant]
     Dosage: 300MG PER DAY
     Route: 065
  13. DEBRIDAT [Concomitant]
     Route: 065
  14. ACETAMINOPHEN [Concomitant]
     Route: 065
  15. ASPEGIC 325 [Concomitant]
     Route: 065
  16. TENORMIN [Concomitant]
     Dosage: .5UNIT PER DAY

REACTIONS (7)
  - AGGRESSION [None]
  - CONFUSIONAL STATE [None]
  - DRUG INTERACTION [None]
  - HYPERSOMNIA [None]
  - HYPERTENSION [None]
  - SOMNOLENCE [None]
  - SUDDEN ONSET OF SLEEP [None]
